FAERS Safety Report 7455996-0 (Version None)
Quarter: 2011Q2

REPORT INFORMATION
  Report Type: 
  Country: None (occurrence: None)
  Receive Date: 20110503
  Receipt Date: 20110422
  Transmission Date: 20111010
  Serious: Yes (Other)
  Sender: FDA-Public Use
  Company Number: US-MERCK-1104USA03483

PATIENT
  Sex: Female

DRUGS (2)
  1. FOSAMAX [Suspect]
     Route: 048
     Dates: start: 19990101, end: 20080901
  2. FOSAMAX [Suspect]
     Route: 048
     Dates: start: 20080101, end: 20080901

REACTIONS (3)
  - SKELETAL INJURY [None]
  - OSTEONECROSIS OF JAW [None]
  - FEMUR FRACTURE [None]
